FAERS Safety Report 4877593-3 (Version None)
Quarter: 2006Q1

REPORT INFORMATION
  Report Type: 
  Country: None (occurrence: None)
  Receive Date: 20060109
  Receipt Date: 20051227
  Transmission Date: 20060701
  Serious: Yes (Hospitalization, Other)
  Sender: FDA-Public Use
  Company Number: 2005173524

PATIENT
  Age: 77 Year
  Sex: Male
  Weight: 81.6475 kg

DRUGS (11)
  1. LIPITOR [Suspect]
     Indication: BLOOD CHOLESTEROL INCREASED
     Dosage: 40 MG (40 MG, 1 IN 1 D),
     Dates: start: 20051101
  2. PLAVIX [Concomitant]
  3. TRICOR [Concomitant]
  4. GLIPIZIDE [Concomitant]
  5. ACTOS [Concomitant]
  6. ENALAPRIL MALEATE [Concomitant]
  7. INDAPAMIDE [Concomitant]
  8. TRUSOPT [Concomitant]
  9. TIMOPTIC [Concomitant]
  10. ALPHAGAN [Concomitant]
  11. LUMIGAN [Concomitant]

REACTIONS (1)
  - NEPHROLITHIASIS [None]
